FAERS Safety Report 20448397 (Version 1)
Quarter: 2022Q1

REPORT INFORMATION
  Report Type: Spontaneous
  Country: US (occurrence: US)
  Receive Date: 20220209
  Receipt Date: 20220209
  Transmission Date: 20220423
  Serious: Yes (Other)
  Sender: FDA-Public Use
  Company Number: US-GLAXOSMITHKLINE-US2022GSK019559

PATIENT
  Sex: Male

DRUGS (4)
  1. ZANTAC [Suspect]
     Active Substance: RANITIDINE HYDROCHLORIDE
     Indication: Gastritis
     Dosage: 20MG-40MG, 1-2X A DAY
     Route: 065
     Dates: start: 199801, end: 201301
  2. ZANTAC [Suspect]
     Active Substance: RANITIDINE HYDROCHLORIDE
     Indication: Gastritis
     Dosage: 20MG-40MG, 1-2X A DAY
     Route: 065
     Dates: start: 199801, end: 201301
  3. RANITIDINE HYDROCHLORIDE [Suspect]
     Active Substance: RANITIDINE HYDROCHLORIDE
     Indication: Gastritis
     Dosage: 20MG-40MG, 1-2X A DAY
     Route: 065
     Dates: start: 199801, end: 201301
  4. RANITIDINE HYDROCHLORIDE [Suspect]
     Active Substance: RANITIDINE HYDROCHLORIDE
     Indication: Gastritis
     Dosage: 20MG-40MG, 1-2X A DAY
     Route: 065
     Dates: start: 199801, end: 201301

REACTIONS (1)
  - Prostate cancer [Unknown]
